FAERS Safety Report 6764722-X (Version None)
Quarter: 2010Q2

REPORT INFORMATION
  Report Type: 
  Country: None (occurrence: None)
  Receive Date: 20100610
  Receipt Date: 20100602
  Transmission Date: 20101027
  Serious: Yes (Life-Threatening)
  Sender: FDA-Public Use
  Company Number: CA-PFIZER INC-2010070073

PATIENT
  Age: 58 Year
  Sex: Male
  Weight: 74.83 kg

DRUGS (2)
  1. LIPITOR [Suspect]
     Dosage: 20 MG, ALTERNATE DAY
     Route: 048
  2. ACETYLSALICYLIC ACID [Concomitant]
     Dosage: UNK

REACTIONS (1)
  - PULMONARY EMBOLISM [None]
